FAERS Safety Report 9905598 (Version 4)
Quarter: 2014Q1

REPORT INFORMATION
  Report Type: Report from Study
  Country: BR (occurrence: BR)
  Receive Date: 20140218
  Receipt Date: 20140314
  Transmission Date: 20141002
  Serious: Yes (Hospitalization)
  Sender: FDA-Public Use
  Company Number: BR-GLAXOSMITHKLINE-Z0022169B

PATIENT
  Age: 77 Year
  Sex: Female

DRUGS (5)
  1. LAPATINIB [Suspect]
     Indication: BREAST CANCER METASTATIC
     Dosage: 1500MG PER DAY
     Route: 048
     Dates: start: 20140210
  2. EXEMESTANE [Suspect]
     Indication: BREAST CANCER METASTATIC
     Dosage: 25MG PER DAY
     Route: 048
     Dates: start: 20140210
  3. ATENOLOL [Concomitant]
  4. IMOSEC [Concomitant]
     Indication: DIARRHOEA
     Dosage: 2MG EVERY 4 DAYS
     Route: 048
     Dates: start: 20140211
  5. ONDANSETRON [Concomitant]
     Indication: VOMITING
     Dosage: 8MG PER DAY
     Route: 048
     Dates: start: 20140214

REACTIONS (1)
  - Renal failure acute [Recovered/Resolved]
